FAERS Safety Report 7010864-3 (Version None)
Quarter: 2010Q3

REPORT INFORMATION
  Report Type: 
  Country: None (occurrence: None)
  Receive Date: 20100923
  Receipt Date: 20100923
  Transmission Date: 20110219
  Serious: Yes (Other)
  Sender: FDA-Public Use
  Company Number: None

PATIENT
  Age: 71 Year
  Sex: Female
  Weight: 144 kg

DRUGS (9)
  1. COUMADIN [Suspect]
     Dosage: 2MG ONCE DAILY, SU/W/SA PO
     Route: 048
     Dates: start: 20100912, end: 20100920
  2. COUMADIN [Suspect]
     Dosage: 3MG DAILY,M/TU/TH/FR PO
     Route: 048
  3. OMEPRAZOLE [Concomitant]
  4. METFORMIN [Concomitant]
  5. DIGOXIN [Concomitant]
  6. FUROSEMIDE [Concomitant]
  7. METOLAZONE [Concomitant]
  8. ACETAMINOPHEN [Concomitant]
  9. SLIDING SCALE INSULIN [Concomitant]

REACTIONS (1)
  - INTERNATIONAL NORMALISED RATIO INCREASED [None]
